FAERS Safety Report 12084581 (Version 1)
Quarter: 2016Q1

REPORT INFORMATION
  Report Type: Spontaneous
  Country: US (occurrence: US)
  Receive Date: 20160217
  Receipt Date: 20160217
  Transmission Date: 20160526
  Serious: Yes (Other)
  Sender: FDA-Public Use
  Company Number: US-ASTRAZENECA-2016SE15478

PATIENT
  Sex: Male
  Weight: 58.5 kg

DRUGS (2)
  1. TUDORZA PRESSAIR [Suspect]
     Active Substance: ACLIDINIUM BROMIDE
     Indication: PULMONARY HYPERTENSION
     Route: 055
     Dates: start: 2013, end: 20160209
  2. TUDORZA PRESSAIR [Suspect]
     Active Substance: ACLIDINIUM BROMIDE
     Indication: CHRONIC OBSTRUCTIVE PULMONARY DISEASE
     Route: 055
     Dates: start: 2013, end: 20160209

REACTIONS (4)
  - Product use issue [Unknown]
  - Terminal state [Unknown]
  - Product quality issue [Unknown]
  - Drug dose omission [Unknown]
